FAERS Safety Report 7057101-1 (Version None)
Quarter: 2010Q4

REPORT INFORMATION
  Report Type: 
  Country: None (occurrence: None)
  Receive Date: 20101022
  Receipt Date: 20100921
  Transmission Date: 20110411
  Serious: No
  Sender: FDA-Public Use
  Company Number: US-BAYER-201036406NA

PATIENT
  Age: 55 Year
  Sex: Female
  Weight: 86 kg

DRUGS (15)
  1. BETASERON [Suspect]
     Indication: PRODUCT USED FOR UNKNOWN INDICATION
     Dosage: TOTAL DAILY DOSE: 8 MIU
     Route: 058
  2. DEPAKOTE ER [Concomitant]
  3. ENABLEX [Concomitant]
  4. RITALIN [Concomitant]
  5. LISINOPRIL [Concomitant]
  6. NITROFUR MAC [Concomitant]
  7. BACLOFEN [Concomitant]
  8. LEVOTHYROXINE SODIUM [Concomitant]
     Dosage: 25 MCG
  9. ARIMIDEX [Concomitant]
  10. MIRALAX [Concomitant]
     Dosage: 3350 NF CO Q-10
  11. CRANBERRY [Concomitant]
     Dosage: URIN COM
  12. FISH OIL [Concomitant]
  13. DEXILANT [Concomitant]
  14. METAMUCIL-2 [Concomitant]
  15. CO Q-10 [Concomitant]

REACTIONS (1)
  - MUSCULOSKELETAL STIFFNESS [None]
